FAERS Safety Report 5152204-0 (Version None)
Quarter: 2006Q4

REPORT INFORMATION
  Report Type: 
  Country: None (occurrence: None)
  Receive Date: 20061109
  Receipt Date: 20061103
  Transmission Date: 20070319
  Serious: Yes (Hospitalization)
  Sender: FDA-Public Use
  Company Number: GB-GDP-0613791

PATIENT
  Age: 55 Year
  Sex: Female

DRUGS (4)
  1. CLINDAGEL [Suspect]
     Route: 061
  2. ERYTHROMYCIN [Suspect]
  3. OMEPRAZOLE [Concomitant]
  4. SIMVASTATIN [Concomitant]

REACTIONS (3)
  - NAUSEA [None]
  - VERTIGO [None]
  - VOMITING [None]
